FAERS Safety Report 11385554 (Version 11)
Quarter: 2016Q4

REPORT INFORMATION
  Report Type: Report from Study
  Country: US (occurrence: US)
  Receive Date: 20150816
  Receipt Date: 20161126
  Transmission Date: 20170206
  Serious: No
  Sender: FDA-Public Use
  Company Number: PHHY2014US070611

PATIENT
  Age: 57 Year
  Sex: Male

DRUGS (13)
  1. ZAFIRLUKAST. [Concomitant]
     Active Substance: ZAFIRLUKAST
     Indication: PRODUCT USED FOR UNKNOWN INDICATION
     Dosage: 20 MG, UNK
     Route: 065
  2. VITAMIN D2 [Concomitant]
     Active Substance: ERGOCALCIFEROL
     Indication: PRODUCT USED FOR UNKNOWN INDICATION
     Dosage: 50000 U, UNK
     Route: 065
  3. PERCOCET [Concomitant]
     Active Substance: ACETAMINOPHEN\OXYCODONE HYDROCHLORIDE
     Indication: PRODUCT USED FOR UNKNOWN INDICATION
     Dosage: 1 DF, QHS (5 MG OXYCODONE/325 MG PARACETAMOL)
     Route: 048
  4. DEPO-TESTOSTERONE [Concomitant]
     Active Substance: TESTOSTERONE CYPIONATE
     Indication: PRODUCT USED FOR UNKNOWN INDICATION
     Dosage: 200 MG, QW3
     Route: 030
  5. LIDOCAINE. [Concomitant]
     Active Substance: LIDOCAINE
     Indication: PRODUCT USED FOR UNKNOWN INDICATION
     Route: 062
  6. ULTRAM [Concomitant]
     Active Substance: TRAMADOL HYDROCHLORIDE
     Indication: PRODUCT USED FOR UNKNOWN INDICATION
     Dosage: 50 MG, QID (AS NEEDED)
     Route: 048
  7. SYNTHROID [Concomitant]
     Active Substance: LEVOTHYROXINE SODIUM
     Indication: PRODUCT USED FOR UNKNOWN INDICATION
     Dosage: 1 DF, QD (BEFORE BREAKFAST)
     Route: 048
  8. SUCRALFATE. [Concomitant]
     Active Substance: SUCRALFATE
     Indication: PRODUCT USED FOR UNKNOWN INDICATION
     Dosage: 1 G, UNK
     Route: 065
  9. ACETAMINOPHEN W/HYDROCODONE [Concomitant]
     Active Substance: ACETAMINOPHEN\HYDROCODONE
     Indication: PRODUCT USED FOR UNKNOWN INDICATION
     Route: 065
  10. ATIVAN [Concomitant]
     Active Substance: LORAZEPAM
     Indication: MUSCLE SPASMS
     Dosage: 1 MG, QHS
     Route: 065
     Dates: start: 20140606
  11. GILENYA [Suspect]
     Active Substance: FINGOLIMOD HYDROCHLORIDE
     Indication: MULTIPLE SCLEROSIS
     Dosage: UNK, QD
     Route: 048
  12. MULTIVITAMINS [Concomitant]
     Active Substance: VITAMINS
     Indication: PRODUCT USED FOR UNKNOWN INDICATION
     Route: 065
  13. ZESTORETIC [Concomitant]
     Active Substance: HYDROCHLOROTHIAZIDE\LISINOPRIL
     Indication: PRODUCT USED FOR UNKNOWN INDICATION
     Dosage: 1 DF, QD (20 MG LISINOPRIL/12.5 MG HCTZ)
     Route: 048

REACTIONS (27)
  - Chills [Recovered/Resolved]
  - Haematocrit decreased [Unknown]
  - Alanine aminotransferase increased [Unknown]
  - Muscle spasms [Recovered/Resolved]
  - Lymphocyte count decreased [Unknown]
  - Oedema peripheral [Unknown]
  - Night sweats [Recovered/Resolved]
  - Pain in extremity [Unknown]
  - Depression [Recovered/Resolved]
  - Haemangioma [Unknown]
  - Melanocytic naevus [Unknown]
  - Photophobia [Unknown]
  - Hypersensitivity [Unknown]
  - Hot flush [Recovered/Resolved]
  - Depression [Recovered/Resolved]
  - Muscular weakness [Unknown]
  - Actinic keratosis [Unknown]
  - Acrochordon [Unknown]
  - Peripheral swelling [Unknown]
  - Lentigo [Unknown]
  - Muscle spasticity [Unknown]
  - Fatigue [Unknown]
  - Diarrhoea [Recovered/Resolved]
  - Lacrimation increased [Unknown]
  - Hyperaesthesia [Unknown]
  - Seborrhoeic keratosis [Unknown]
  - Skin graft scar [Unknown]

NARRATIVE: CASE EVENT DATE: 20140304
